FAERS Safety Report 17210592 (Version 1)
Quarter: 2019Q4

REPORT INFORMATION
  Report Type: Spontaneous
  Country: US (occurrence: US)
  Receive Date: 20191227
  Receipt Date: 20191227
  Transmission Date: 20200122
  Serious: No
  Sender: FDA-Public Use
  Company Number: US-GUERBET-US-20190052

PATIENT
  Age: 45 Year
  Sex: Female
  Weight: 106.5 kg

DRUGS (1)
  1. DOTAREM [Suspect]
     Active Substance: GADOTERATE MEGLUMINE
     Indication: MAGNETIC RESONANCE IMAGING
     Route: 042
     Dates: start: 20190306, end: 20190306

REACTIONS (2)
  - Urticaria [Recovered/Resolved]
  - Product use in unapproved indication [Recovered/Resolved]

NARRATIVE: CASE EVENT DATE: 20190306
